FAERS Safety Report 16822372 (Version 1)
Quarter: 2019Q4

REPORT INFORMATION
  Report Type: Spontaneous
  Country: US (occurrence: US)
  Receive Date: 20190918
  Receipt Date: 20190918
  Transmission Date: 20200122
  Serious: Yes (Hospitalization)
  Sender: FDA-Public Use
  Company Number: None

PATIENT
  Sex: Male

DRUGS (5)
  1. ATORVASTATIN [Concomitant]
     Active Substance: ATORVASTATIN
  2. TAMSULOSIN [Concomitant]
     Active Substance: TAMSULOSIN
  3. ADCIRCA [Suspect]
     Active Substance: TADALAFIL
     Indication: HYPERTENSION
     Route: 048
     Dates: start: 20190823
  4. ASPIRIN. [Concomitant]
     Active Substance: ASPIRIN
  5. SPIRIVA [Concomitant]
     Active Substance: TIOTROPIUM BROMIDE MONOHYDRATE

REACTIONS (3)
  - Asthenia [None]
  - Fatigue [None]
  - Dyspnoea [None]
